FAERS Safety Report 5118177-1 (Version None)
Quarter: 2006Q3

REPORT INFORMATION
  Report Type: 
  Country: None (occurrence: None)
  Receive Date: 20060928
  Receipt Date: 20060928
  Transmission Date: 20061208
  Serious: No
  Sender: FDA-Public Use
  Company Number: None

PATIENT
  Age: 79 Year
  Sex: Male
  Weight: 62.7778 kg

DRUGS (18)
  1. SEROQUEL [Suspect]
     Indication: ABNORMAL BEHAVIOUR
     Dosage: 25MG QAM PO
     Route: 048
     Dates: start: 20060810, end: 20060815
  2. SEROQUEL [Suspect]
     Indication: DEMENTIA
     Dosage: 25MG QAM PO
     Route: 048
     Dates: start: 20060810, end: 20060815
  3. SEROQUEL [Suspect]
     Indication: ABNORMAL BEHAVIOUR
     Dosage: 50MG QHS PO
     Route: 048
     Dates: start: 20060810, end: 20060815
  4. SEROQUEL [Suspect]
     Indication: DEMENTIA
     Dosage: 50MG QHS PO
     Route: 048
     Dates: start: 20060810, end: 20060815
  5. ACETAMINOPHEN [Concomitant]
  6. ARICEPT [Concomitant]
  7. CATAPRES-TTS-1 [Concomitant]
  8. DOCUSATE NA [Concomitant]
  9. LISINOPRIL [Concomitant]
  10. LORAZEPAM [Concomitant]
  11. NAMENDA [Concomitant]
  12. NORVASC [Concomitant]
  13. VALPROIC ACID [Concomitant]
  14. CIPROFLOXACIN [Concomitant]
  15. ACETAMINOPHEN [Concomitant]
  16. HALOPERIDOL [Concomitant]
  17. MAALOX FAST BLOCKER [Concomitant]
  18. MOM [Concomitant]

REACTIONS (1)
  - NEUROLEPTIC MALIGNANT SYNDROME [None]
